FAERS Safety Report 25603910 (Version 1)
Quarter: 2025Q3

REPORT INFORMATION
  Report Type: Report from Study
  Country: CA (occurrence: CA)
  Receive Date: 20250725
  Receipt Date: 20250725
  Transmission Date: 20251021
  Serious: Yes (Other)
  Sender: ABBVIE
  Company Number: CA-ABBVIE-6384533

PATIENT
  Age: 75 Year
  Sex: Female

DRUGS (2)
  1. SKYRIZI [Suspect]
     Active Substance: RISANKIZUMAB-RZAA
     Indication: Psoriasis
     Route: 058
  2. SKYRIZI [Suspect]
     Active Substance: RISANKIZUMAB-RZAA
     Indication: Crohn^s disease

REACTIONS (3)
  - Ulcer [Recovering/Resolving]
  - Back pain [Recovered/Resolved]
  - Skin discolouration [Unknown]

NARRATIVE: CASE EVENT DATE: 20250101
